FAERS Safety Report 8791323 (Version 2)
Quarter: 2012Q4

REPORT INFORMATION
  Report Type: Spontaneous
  Country: US (occurrence: None)
  Receive Date: 20120911
  Receipt Date: 20120917
  Transmission Date: 20130627
  Serious: Yes (Hospitalization, Other)
  Sender: FDA-Public Use
  Company Number: NES-AE-12-009

PATIENT
  Age: 58 Year
  Sex: Female

DRUGS (26)
  1. OXYCODONE [Suspect]
     Indication: CHRONIC BACK PAIN
     Route: 048
     Dates: end: 20120724
  2. OXYCONTIN [Suspect]
     Indication: CHRONIC BACK PAIN
     Route: 048
     Dates: end: 20120724
  3. IPILIMUMAB [Suspect]
     Indication: PROSTATE CANCER
     Dosage: 295 ml - cyclical - IV
     Route: 042
     Dates: start: 20111206, end: 20120529
  4. PLACEBO [Suspect]
     Indication: PROSTATE CANCER
     Dosage: UNK - cyclical - IV
     Route: 042
     Dates: start: 20111206, end: 20120529
  5. ACTOS [Concomitant]
  6. ALEVE [Concomitant]
  7. ASPIRIN [Concomitant]
  8. AMARYL [Concomitant]
  9. CELEBREX [Concomitant]
  10. CITALOPRAM [Concomitant]
  11. METFORMIN [Concomitant]
  12. PREDNISONE [Concomitant]
  13. LISINOPRIL [Concomitant]
  14. TITRALAC [Concomitant]
  15. TRAZODONE [Concomitant]
  16. ZOCOR [Concomitant]
  17. TRIAMCINOLONE [Concomitant]
  18. AUGMENTIN [Concomitant]
  19. BUSPAR [Concomitant]
  20. HUMULIN R [Concomitant]
  21. NOVOLIN R [Concomitant]
  22. PAXIL [Concomitant]
  23. HUMULIN N [Concomitant]
  24. MYCOSTATIN [Concomitant]
  25. DESYREL [Concomitant]
  26. BACTRIM DS [Concomitant]

REACTIONS (34)
  - Cellulitis staphylococcal [None]
  - Skin ulcer [None]
  - Drug dependence [None]
  - Drug withdrawal syndrome [None]
  - Psychotic disorder [None]
  - Diarrhoea [None]
  - Pruritus [None]
  - Mania [None]
  - Self injurious behaviour [None]
  - Supraventricular extrasystoles [None]
  - Electrocardiogram ST segment elevation [None]
  - Depression [None]
  - Cognitive disorder [None]
  - Affective disorder [None]
  - Refusal of treatment by patient [None]
  - Drug abuse [None]
  - Overdose [None]
  - Anxiety [None]
  - Insomnia [None]
  - Hyperhidrosis [None]
  - Tremor [None]
  - Tachycardia [None]
  - Bipolar disorder [None]
  - Irritability [None]
  - Restlessness [None]
  - Agitation [None]
  - Dysphoria [None]
  - Serotonin syndrome [None]
  - Abnormal behaviour [None]
  - Euphoric mood [None]
  - Thinking abnormal [None]
  - Delusion of grandeur [None]
  - Aggression [None]
  - Electrocardiogram repolarisation abnormality [None]
